FAERS Safety Report 15775657 (Version 1)
Quarter: 2018Q4

REPORT INFORMATION
  Report Type: Spontaneous
  Country: CZ (occurrence: CZ)
  Receive Date: 20181231
  Receipt Date: 20181231
  Transmission Date: 20190205
  Serious: Yes (Disabling, Other)
  Sender: FDA-Public Use
  Company Number: CZ-PROVELL PHARMACEUTICALS-2060703

PATIENT
  Sex: Male

DRUGS (4)
  1. BETALOC ZOK [Suspect]
     Active Substance: METOPROLOL SUCCINATE
     Dates: start: 20141121
  2. IFIRMACOMBI(CO IRABEL) [Suspect]
     Active Substance: HYDROCHLOROTHIAZIDE\IRBESARTAN
     Dates: start: 20140410
  3. STACYL [Concomitant]
  4. EUTHYROX [Suspect]
     Active Substance: LEVOTHYROXINE SODIUM
     Indication: PRODUCT USED FOR UNKNOWN INDICATION
     Dates: start: 20180623

REACTIONS (6)
  - Arthralgia [None]
  - Asthenia [Recovered/Resolved]
  - Gait disturbance [None]
  - Pollakiuria [Unknown]
  - Abnormal loss of weight [Unknown]
  - Dizziness [None]

NARRATIVE: CASE EVENT DATE: 201807
